FAERS Safety Report 17859587 (Version 1)
Quarter: 2020Q2

REPORT INFORMATION
  Report Type: Spontaneous
  Country: US (occurrence: US)
  Receive Date: 20200604
  Receipt Date: 20200604
  Transmission Date: 20200714
  Serious: Yes (Other)
  Sender: FDA-Public Use
  Company Number: US-PFIZER INC-2020212101

PATIENT
  Sex: Male

DRUGS (5)
  1. AZITHROMYCIN ANHYDROUS. [Suspect]
     Active Substance: AZITHROMYCIN ANHYDROUS
     Dosage: UNK, (MONOTHERAPY UNTIL DELIVERY)
  2. CLINDAMYCIN PHOSPHATE. [Suspect]
     Active Substance: CLINDAMYCIN PHOSPHATE
     Indication: BABESIOSIS
     Dosage: UNK, (8-WEEK COURSE)
     Route: 064
  3. ATOVAQUONE. [Suspect]
     Active Substance: ATOVAQUONE
     Indication: BABESIOSIS
     Dosage: UNK, 8-WEEK COURSE
     Route: 064
  4. AZITHROMYCIN ANHYDROUS. [Suspect]
     Active Substance: AZITHROMYCIN ANHYDROUS
     Indication: BABESIOSIS
     Dosage: UNK, (8-WEEK COURSE)
     Route: 064
  5. QUININE [Suspect]
     Active Substance: QUININE
     Indication: BABESIOSIS
     Dosage: UNK
     Route: 064

REACTIONS (3)
  - Autosomal chromosome anomaly [Not Recovered/Not Resolved]
  - Acute myeloid leukaemia [Not Recovered/Not Resolved]
  - Maternal exposure during pregnancy [Unknown]
